FAERS Safety Report 4807595-4 (Version None)
Quarter: 2005Q4

REPORT INFORMATION
  Report Type: 
  Country: None (occurrence: None)
  Receive Date: 20051020
  Receipt Date: 20051022
  Transmission Date: 20060501
  Serious: Yes (Hospitalization)
  Sender: FDA-Public Use
  Company Number: US-2005-010886

PATIENT
  Age: 50 Year
  Sex: Female
  Weight: 65.3 kg

DRUGS (7)
  1. BETASERON [Suspect]
     Indication: RELAPSING-REMITTING MULTIPLE SCLEROSIS
     Dosage: SEE IMAGE
     Route: 058
     Dates: start: 19970101, end: 20050503
  2. BETASERON [Suspect]
     Indication: RELAPSING-REMITTING MULTIPLE SCLEROSIS
     Dosage: SEE IMAGE
     Route: 058
     Dates: start: 20050510
  3. ZELNORM [Concomitant]
  4. ACIPHEX [Concomitant]
  5. WELLBUTRIN [Concomitant]
  6. ZYPREXA [Concomitant]
  7. RESTORIL [Concomitant]

REACTIONS (10)
  - BLOOD CREATINE PHOSPHOKINASE INCREASED [None]
  - CONDITION AGGRAVATED [None]
  - FASCIITIS [None]
  - INJECTION SITE CELLULITIS [None]
  - INJECTION SITE INDURATION [None]
  - INJECTION SITE INFECTION [None]
  - IRRITABLE BOWEL SYNDROME [None]
  - LYMPHOCYTE PERCENTAGE DECREASED [None]
  - MYOSITIS [None]
  - NEUTROPHIL PERCENTAGE INCREASED [None]
